FAERS Safety Report 23829738 (Version 1)
Quarter: 2024Q2

REPORT INFORMATION
  Report Type: Spontaneous
  Country: IL (occurrence: IL)
  Receive Date: 20240508
  Receipt Date: 20240508
  Transmission Date: 20240716
  Serious: Yes (Death)
  Sender: FDA-Public Use
  Company Number: IL-ASTELLAS-2024US013158

PATIENT
  Age: 79 Year
  Sex: Female

DRUGS (1)
  1. XOSPATA [Suspect]
     Active Substance: GILTERITINIB
     Indication: Product used for unknown indication
     Dosage: UNK UNK, UNKNOWN FREQ. (18 MONTHS)
     Route: 065

REACTIONS (1)
  - General physical health deterioration [Fatal]
